FAERS Safety Report 4315527-0 (Version None)
Quarter: 2004Q1

REPORT INFORMATION
  Report Type: 
  Country: None (occurrence: None)
  Receive Date: 20040311
  Receipt Date: 20040227
  Transmission Date: 20041129
  Serious: Yes (Other)
  Sender: FDA-Public Use
  Company Number: PHBS2004US02809

PATIENT
  Age: 62 Year
  Sex: Male

DRUGS (3)
  1. MYCOPHENOLIC ACID [Suspect]
     Indication: RENAL TRANSPLANT
     Route: 065
  2. CYCLOSPORINE [Suspect]
     Indication: RENAL TRANSPLANT
  3. PREDNISONE [Suspect]
     Indication: RENAL TRANSPLANT

REACTIONS (8)
  - CONGENITAL ECTODERMAL DYSPLASIA [None]
  - DERMAL CYST [None]
  - ERYTHEMA [None]
  - HYPERKERATOSIS PALMARIS AND PLANTARIS [None]
  - HYPOTRICHOSIS [None]
  - NAIL DYSTROPHY [None]
  - RASH PAPULAR [None]
  - SWEAT GLAND TUMOUR [None]
